FAERS Safety Report 16088746 (Version 1)
Quarter: 2019Q1

REPORT INFORMATION
  Report Type: Spontaneous
  Country: CZ (occurrence: CZ)
  Receive Date: 20190319
  Receipt Date: 20190319
  Transmission Date: 20190418
  Serious: Yes (Life-Threatening, Other)
  Sender: FDA-Public Use
  Company Number: CZ-AMGEN-CZESP2019042564

PATIENT
  Age: 64 Year
  Sex: Male

DRUGS (7)
  1. SURGAM [Concomitant]
     Active Substance: TIAPROFENIC ACID
     Dosage: UNK
  2. CALTRATE PLUS [BORON;CALCIUM CARBONATE;COLECALCIFEROL;COPPER;MAGNESIUM [Concomitant]
     Dosage: UNK
  3. ACIDUM FOLICUM [Concomitant]
     Active Substance: FOLIC ACID
     Dosage: UNK
  4. ENBREL [Suspect]
     Active Substance: ETANERCEPT
     Indication: RHEUMATOID ARTHRITIS
     Dosage: 50 MG, WEEKLY
     Route: 058
     Dates: start: 200509, end: 201811
  5. MEDROL [Concomitant]
     Active Substance: METHYLPREDNISOLONE
     Dosage: UNK
  6. METHOTREXATE. [Concomitant]
     Active Substance: METHOTREXATE
     Dosage: UNK
  7. VIGANTOL [COLECALCIFEROL] [Concomitant]
     Dosage: UNK

REACTIONS (1)
  - Oesophageal adenocarcinoma [Not Recovered/Not Resolved]

NARRATIVE: CASE EVENT DATE: 201811
